FAERS Safety Report 8988677 (Version 3)
Quarter: 2013Q3

REPORT INFORMATION
  Report Type: Report from Study
  Country: JP (occurrence: JP)
  Receive Date: 20121228
  Receipt Date: 20130813
  Transmission Date: 20140515
  Serious: Yes (Other)
  Sender: FDA-Public Use
  Company Number: JP-VERTEX PHARMACEUTICALS INC.-2012-026672

PATIENT
  Age: 55 Year
  Sex: Male

DRUGS (18)
  1. VX-950 (TELAPREVIR) [Suspect]
     Indication: CHRONIC HEPATITIS C
     Dosage: 2250 MG, QD
     Route: 048
     Dates: start: 20120627, end: 20120918
  2. PEGINTRON [Suspect]
     Indication: CHRONIC HEPATITIS C
     Dosage: 0.75 ?G/KG, QW
     Route: 058
     Dates: start: 20120620, end: 20120627
  3. PEGINTRON [Suspect]
     Dosage: 0.45 ?G/KG, QW
     Route: 058
     Dates: start: 20120704, end: 20120704
  4. PEGINTRON [Suspect]
     Dosage: 0.75 ?G/KG, QW
     Route: 058
     Dates: start: 20120711, end: 20120711
  5. PEGINTRON [Suspect]
     Dosage: 0.9 ?G/KG, QW
     Route: 058
     Dates: start: 20120718, end: 20120718
  6. PEGINTRON [Suspect]
     Dosage: 1.25 ?G/KG, QW
     Route: 058
     Dates: start: 20120725, end: 20120808
  7. PEGINTRON [Suspect]
     Dosage: 1.5 ?G/KG, QW
     Route: 058
     Dates: start: 20120815, end: 20121212
  8. REBETOL [Suspect]
     Indication: CHRONIC HEPATITIS C
     Dosage: 800 MG, QD
     Route: 048
     Dates: start: 20120620, end: 20120703
  9. REBETOL [Suspect]
     Dosage: 600 MG, QD
     Route: 048
     Dates: start: 20120704, end: 20120710
  10. REBETOL [Suspect]
     Dosage: 800 MG, QD
     Route: 048
     Dates: start: 20120711, end: 20121218
  11. URSO [Concomitant]
     Dosage: 200 MG, QD
     Route: 048
  12. NESINA [Concomitant]
     Dosage: UNK
     Route: 048
  13. NESINA [Concomitant]
     Dosage: 25 MG, QD
     Route: 048
     Dates: start: 20120705
  14. ISOTONIC SODIUM CHLORIDE SOLUTION [Concomitant]
     Dosage: 500 ML, QD
     Route: 041
     Dates: start: 20120804, end: 20120804
  15. LIVOSTIN [Concomitant]
     Dosage: 1 BOTTLE(5ML) QID IN RIGHT EYE
     Route: 047
     Dates: start: 20120829, end: 20120829
  16. LIVOSTIN [Concomitant]
     Dosage: 3 BOTTLES(15ML) QID RIGHT EYE
     Route: 047
     Dates: start: 20120912, end: 20120912
  17. TAKEPRON [Concomitant]
     Dosage: 30 MG, QD
     Route: 048
     Dates: start: 20120622, end: 20120628
  18. TAKEPRON [Concomitant]
     Dosage: 30 MG, QD
     Route: 048
     Dates: start: 20120702, end: 20120715

REACTIONS (1)
  - Retinopathy [Recovered/Resolved]
